FAERS Safety Report 7979374-0 (Version None)
Quarter: 2011Q4

REPORT INFORMATION
  Report Type: 
  Country: None (occurrence: None)
  Receive Date: 20111214
  Receipt Date: 20110922
  Transmission Date: 20120403
  Serious: No
  Sender: FDA-Public Use
  Company Number: US-GLAXOSMITHKLINE-A0945615A

PATIENT
  Age: 69 Year
  Sex: Female

DRUGS (1)
  1. NICORETTE (MINT) [Suspect]
     Indication: EX-TOBACCO USER
     Dates: start: 20110922, end: 20110922

REACTIONS (2)
  - ORAL DISCOMFORT [None]
  - THROAT IRRITATION [None]
